FAERS Safety Report 5780021-7 (Version None)
Quarter: 2008Q2

REPORT INFORMATION
  Report Type: 
  Country: None (occurrence: None)
  Receive Date: 20080620
  Receipt Date: 20080609
  Transmission Date: 20081010
  Serious: Yes (Hospitalization)
  Sender: FDA-Public Use
  Company Number: FR-BRISTOL-MYERS SQUIBB COMPANY-14220495

PATIENT
  Age: 72 Year
  Sex: Male
  Weight: 58 kg

DRUGS (8)
  1. CETUXIMAB [Suspect]
     Indication: BILE DUCT CANCER
     Dosage: INITIATED ON 22-JAN-2008(500MG/M2). REDUCED DOSE STARTED-27MAR08
     Route: 041
     Dates: start: 20080312, end: 20080312
  2. ELOXATIN [Suspect]
     Indication: BILE DUCT CANCER
     Dosage: INITIATED ON 22-JAN-2008 (100MG/M2).IV DRIP 27MAR08-CONTINUING
     Route: 042
     Dates: start: 20080313, end: 20080313
  3. GEMZAR [Suspect]
     Indication: BILE DUCT CANCER
     Dosage: INITIATED ON 22-JAN-2008(1000 MG/M2).27MAR08-CONTINUING.
     Route: 042
     Dates: start: 20080312, end: 20080312
  4. ZOPHREN [Concomitant]
  5. PRIMPERAN TAB [Concomitant]
  6. SMECTA [Concomitant]
  7. IMODIUM [Concomitant]
  8. LOVENOX [Concomitant]

REACTIONS (1)
  - MALNUTRITION [None]
